FAERS Safety Report 17253782 (Version 2)
Quarter: 2020Q1

REPORT INFORMATION
  Report Type: Spontaneous
  Country: JP (occurrence: JP)
  Receive Date: 20200109
  Receipt Date: 20200204
  Transmission Date: 20200409
  Serious: Yes (Hospitalization)
  Sender: FDA-Public Use
  Company Number: JP-JNJFOC-20200112584

PATIENT
  Age: 71 Year
  Sex: Female

DRUGS (2)
  1. ONEDURO [Suspect]
     Active Substance: FENTANYL
     Indication: PAIN
     Dosage: FENTANYL (ONE DAY MATRIX PATCH) 25MCG/HR
     Route: 062
  2. ONEDURO [Suspect]
     Active Substance: FENTANYL
     Route: 062

REACTIONS (1)
  - Back pain [Unknown]

NARRATIVE: CASE EVENT DATE: 20200106
